FAERS Safety Report 21212977 (Version 1)
Quarter: 2022Q3

REPORT INFORMATION
  Report Type: Spontaneous
  Country: DE (occurrence: DE)
  Receive Date: 20220815
  Receipt Date: 20220815
  Transmission Date: 20221027
  Serious: Yes (Hospitalization)
  Sender: FDA-Public Use
  Company Number: DE-BoehringerIngelheim-2022-BI-186600

PATIENT
  Age: 80 Year
  Sex: Male

DRUGS (7)
  1. EMPAGLIFLOZIN [Suspect]
     Active Substance: EMPAGLIFLOZIN
     Indication: Cardiac failure
  2. PHENPROCOUMON [Concomitant]
     Active Substance: PHENPROCOUMON
     Indication: Product used for unknown indication
  3. BISOPROLOL [Concomitant]
     Active Substance: BISOPROLOL
     Indication: Product used for unknown indication
  4. Sacubitril/Valsartan 24/26 mg [Concomitant]
     Indication: Product used for unknown indication
  5. Isosorbiddinitrat 60 mg [Concomitant]
     Indication: Product used for unknown indication
  6. Molsidomin 8 mg [Concomitant]
     Indication: Product used for unknown indication
  7. Torsemid 10 mg [Concomitant]

REACTIONS (2)
  - Bundle branch block left [Unknown]
  - Weight decreased [Unknown]
